FAERS Safety Report 9274804 (Version 7)
Quarter: 2014Q1

REPORT INFORMATION
  Report Type: Spontaneous
  Country: US (occurrence: US)
  Receive Date: 20130507
  Receipt Date: 20140204
  Transmission Date: 20141002
  Serious: Yes (Hospitalization, Congenital Anomaly)
  Sender: FDA-Public Use
  Company Number: US-JNJFOC-20130417708

PATIENT
  Age: 0 None
  Sex: Male

DRUGS (9)
  1. TOPAMAX [Suspect]
     Indication: FOETAL EXPOSURE DURING PREGNANCY
     Route: 064
  2. TOPAMAX [Suspect]
     Indication: FOETAL EXPOSURE DURING PREGNANCY
     Route: 064
     Dates: start: 200206, end: 200207
  3. RISPERDAL [Suspect]
     Indication: FOETAL EXPOSURE DURING PREGNANCY
     Route: 064
  4. TRAZODONE [Suspect]
     Indication: FOETAL EXPOSURE DURING PREGNANCY
     Route: 064
  5. CHLORPROMAZINE [Suspect]
     Indication: FOETAL EXPOSURE DURING PREGNANCY
     Route: 064
  6. PROMETHAZINE [Suspect]
     Indication: FOETAL EXPOSURE DURING PREGNANCY
     Route: 064
  7. NIFEDIPINE [Suspect]
     Indication: FOETAL EXPOSURE DURING PREGNANCY
     Route: 064
  8. FE-TINIC [Concomitant]
     Indication: FOETAL EXPOSURE DURING PREGNANCY
     Route: 064
  9. PREMESISRX [Concomitant]
     Indication: FOETAL EXPOSURE DURING PREGNANCY
     Route: 064

REACTIONS (6)
  - Hypospadias [Unknown]
  - Dacryostenosis congenital [Unknown]
  - Jaundice neonatal [Recovering/Resolving]
  - Premature baby [Not Recovered/Not Resolved]
  - Low birth weight baby [Unknown]
  - Emotional disorder [Unknown]
